FAERS Safety Report 18944653 (Version 1)
Quarter: 2021Q1

REPORT INFORMATION
  Report Type: Spontaneous
  Country: US (occurrence: US)
  Receive Date: 20210226
  Receipt Date: 20210226
  Transmission Date: 20210420
  Serious: No
  Sender: FDA-Public Use
  Company Number: None

PATIENT
  Age: 83 Year
  Sex: Female
  Weight: 46.7 kg

DRUGS (15)
  1. NORCO 5?325MG [Concomitant]
  2. CAPECITABINE. [Suspect]
     Active Substance: CAPECITABINE
     Indication: COLON CANCER
     Route: 048
     Dates: start: 20210127
  3. METHOTREXATE 2.5MG [Concomitant]
     Active Substance: METHOTREXATE
  4. POTASSIUM CHLORIDE ER 20MEQ [Concomitant]
  5. THEOPHYLLINE ER 300MG [Concomitant]
  6. FOSAMAX [Concomitant]
     Active Substance: ALENDRONATE SODIUM
  7. BUPROPION 100MG [Concomitant]
     Active Substance: BUPROPION
  8. ZOLOFT [Concomitant]
     Active Substance: SERTRALINE HYDROCHLORIDE
  9. HYDROCHLOROTHIAZIDE 12.5MG [Concomitant]
     Active Substance: HYDROCHLOROTHIAZIDE
  10. AMLODIPINE [Concomitant]
     Active Substance: AMLODIPINE BESYLATE
  11. PREDNISONE 5MG [Concomitant]
     Active Substance: PREDNISONE
  12. SIMVASTATIN 20MG [Concomitant]
     Active Substance: SIMVASTATIN
  13. ACETAMINOPHEN 325MG [Concomitant]
  14. MAGNESIUM CITRATE. [Concomitant]
     Active Substance: MAGNESIUM CITRATE
  15. PENTOXIFYLLINE ER 400MG [Concomitant]

REACTIONS (1)
  - Rash [None]

NARRATIVE: CASE EVENT DATE: 20210226
